FAERS Safety Report 9786252 (Version 4)
Quarter: 2014Q1

REPORT INFORMATION
  Report Type: Spontaneous
  Country: US (occurrence: US)
  Receive Date: 20131227
  Receipt Date: 20140207
  Transmission Date: 20141002
  Serious: Yes (Other)
  Sender: FDA-Public Use
  Company Number: US-FRI-S03-USA-03330-01

PATIENT
  Age: 76 Year
  Sex: Female
  Weight: 61 kg

DRUGS (6)
  1. LEXAPRO [Suspect]
     Indication: FIBROMYALGIA
     Dosage: 10MG
     Route: 048
     Dates: start: 20030612, end: 20030801
  2. LEXAPRO [Suspect]
     Indication: DEPRESSION
  3. INDERAL [Concomitant]
     Indication: HYPERTENSION
     Dosage: 60MG
     Dates: start: 1993
  4. PREMARIN [Concomitant]
     Dosage: 0.3MG
  5. VALIUM [Concomitant]
     Indication: ANXIETY
     Dosage: 5MG
     Dates: start: 1983
  6. TYLENOL [Concomitant]

REACTIONS (33)
  - Visual acuity reduced [Not Recovered/Not Resolved]
  - Corneal opacity [Recovered/Resolved]
  - Corneal oedema [Not Recovered/Not Resolved]
  - Ophthalmoplegia [Not Recovered/Not Resolved]
  - Neuralgia [Unknown]
  - Diplopia [Unknown]
  - Pain in extremity [Not Recovered/Not Resolved]
  - Back pain [Unknown]
  - Vitreous floaters [Unknown]
  - Skin lesion [Recovered/Resolved]
  - Hypoaesthesia oral [Recovered/Resolved]
  - Drooling [Recovered/Resolved]
  - Hallucination, visual [Recovered/Resolved]
  - Pruritus generalised [Recovered/Resolved]
  - Palpitations [Not Recovered/Not Resolved]
  - Gastrooesophageal reflux disease [Not Recovered/Not Resolved]
  - Nausea [Recovered/Resolved]
  - Restless legs syndrome [Not Recovered/Not Resolved]
  - Joint swelling [Recovered/Resolved]
  - Chills [Recovered/Resolved]
  - Hyperhidrosis [Recovered/Resolved]
  - Dyskinesia [Not Recovered/Not Resolved]
  - Abdominal pain [Not Recovered/Not Resolved]
  - Abdominal distension [Not Recovered/Not Resolved]
  - Headache [Not Recovered/Not Resolved]
  - Diarrhoea [Unknown]
  - Paraesthesia [Unknown]
  - Flatulence [Recovered/Resolved]
  - Ecchymosis [Unknown]
  - Balance disorder [Unknown]
  - Fall [Unknown]
  - Abnormal dreams [Unknown]
  - Off label use [Recovered/Resolved]
